FAERS Safety Report 5053375-7 (Version None)
Quarter: 2006Q2

REPORT INFORMATION
  Report Type: 
  Country: None (occurrence: None)
  Receive Date: 20060614
  Receipt Date: 20060221
  Transmission Date: 20061013
  Serious: Yes (Other)
  Sender: FDA-Public Use
  Company Number: 435756

PATIENT
  Sex: Female

DRUGS (1)
  1. BONIVA [Suspect]
     Indication: DRUG USE FOR UNKNOWN INDICATION
     Dosage: ORAL
     Route: 048
     Dates: start: 20060201

REACTIONS (6)
  - DIZZINESS [None]
  - DYSGEUSIA [None]
  - EYE PRURITUS [None]
  - LACRIMATION INCREASED [None]
  - NECK PAIN [None]
  - SINUS DISORDER [None]
